FAERS Safety Report 8553991-1 (Version None)
Quarter: 2012Q3

REPORT INFORMATION
  Report Type: 
  Country: None (occurrence: None)
  Receive Date: 20120731
  Receipt Date: 20120716
  Transmission Date: 20120928
  Serious: Yes (Other)
  Sender: FDA-Public Use
  Company Number: GB-WATSON-2012-13059

PATIENT
  Age: 23 Year
  Sex: Male
  Weight: 111.5 kg

DRUGS (2)
  1. ACYCLOVIR [Suspect]
     Indication: ENCEPHALITIS
     Dosage: 10 MG/KG, Q8H
     Route: 042
  2. ACYCLOVIR [Suspect]
     Indication: MENINGITIS

REACTIONS (1)
  - RENAL FAILURE ACUTE [None]
